FAERS Safety Report 5711244-0 (Version None)
Quarter: 2008Q2

REPORT INFORMATION
  Report Type: 
  Country: None (occurrence: None)
  Receive Date: 20080414
  Receipt Date: 20080404
  Transmission Date: 20081010
  Serious: Yes (Hospitalization, Other)
  Sender: FDA-Public Use
  Company Number: 2008SP000003

PATIENT
  Age: 68 Year
  Sex: Male
  Weight: 67 kg

DRUGS (7)
  1. TEMOZOLOMIDE [Suspect]
     Indication: GLIOBLASTOMA
     Dosage: 75 MG/M2;
     Dates: start: 20071126
  2. DEXAMETHASONE [Suspect]
     Indication: GLIOBLASTOMA
     Dosage: 2 MG;TID;PO
     Route: 048
     Dates: end: 20080120
  3. HYDROCHLOROTHIAZIDE [Concomitant]
  4. UNAT [Concomitant]
  5. FELODIPINE [Concomitant]
  6. LISINOPRIL [Concomitant]
  7. NEXIUM [Concomitant]

REACTIONS (7)
  - BLOOD COUNT ABNORMAL [None]
  - DEHYDRATION [None]
  - DIABETES MELLITUS INADEQUATE CONTROL [None]
  - FATIGUE [None]
  - ILL-DEFINED DISORDER [None]
  - MOBILITY DECREASED [None]
  - SOMNOLENCE [None]
